FAERS Safety Report 22197276 (Version 2)
Quarter: 2023Q4

REPORT INFORMATION
  Report Type: Spontaneous
  Country: AT (occurrence: AT)
  Receive Date: 20230411
  Receipt Date: 20231204
  Transmission Date: 20240109
  Serious: Yes (Hospitalization)
  Sender: FDA-Public Use
  Company Number: None

PATIENT
  Age: 28 Year
  Sex: Female

DRUGS (10)
  1. ADBRY [Suspect]
     Active Substance: TRALOKINUMAB-LDRM
     Indication: Eczema herpeticum
     Dosage: 2 DOSAGE FORM, OTHER(EVERY 2 WEEKS)
     Dates: start: 202110
  2. ADBRY [Suspect]
     Active Substance: TRALOKINUMAB-LDRM
     Indication: Eczema herpeticum
     Dosage: 2 DOSAGE FORM, OTHER(EVERY 2 WEEKS)
     Dates: start: 202110
  3. ADBRY [Suspect]
     Active Substance: TRALOKINUMAB-LDRM
     Indication: Eczema herpeticum
     Dosage: 3 DOSAGE FORM, UNKNOWN
  4. ADBRY [Suspect]
     Active Substance: TRALOKINUMAB-LDRM
     Indication: Eczema herpeticum
     Dosage: 3 DOSAGE FORM, UNKNOWN
  5. PFIZER-BIONTECH COVID-19 VACCINE [Suspect]
     Active Substance: TOZINAMERAN
     Indication: COVID-19
     Dosage: UNK UNK, UNKNOWN
     Dates: start: 20211112
  6. METHOTREXATE [Suspect]
     Active Substance: METHOTREXATE
     Indication: Product used for unknown indication
     Dosage: 15 MG, WEEKLY (1/W)
     Dates: start: 202211
  7. OLUMIANT [Suspect]
     Active Substance: BARICITINIB
     Indication: Dermatitis atopic
     Dosage: 4 MG, DAILY
     Route: 048
     Dates: start: 202302
  8. OLUMIANT [Suspect]
     Active Substance: BARICITINIB
     Indication: Dermatitis atopic
     Dosage: 4 MG, DAILY
     Route: 048
     Dates: start: 202112, end: 20221221
  9. OLUMIANT [Suspect]
     Active Substance: BARICITINIB
     Indication: Dermatitis atopic
     Dosage: 4 MG, DAILY
     Route: 048
     Dates: start: 202106, end: 202110
  10. CIBINQO [Suspect]
     Active Substance: ABROCITINIB
     Indication: Product used for unknown indication
     Dosage: 200 MG, DAILY

REACTIONS (6)
  - Product use in unapproved indication [Unknown]
  - Asthma [Unknown]
  - Eczema herpeticum [Recovering/Resolving]
  - Oral herpes [Unknown]
  - Infection [Unknown]
  - Oedema peripheral [Not Recovered/Not Resolved]

NARRATIVE: CASE EVENT DATE: 20210601
